FAERS Safety Report 5012996-8 (Version None)
Quarter: 2006Q2

REPORT INFORMATION
  Report Type: 
  Country: None (occurrence: None)
  Receive Date: 20060530
  Receipt Date: 20060517
  Transmission Date: 20061013
  Serious: Yes (Hospitalization)
  Sender: FDA-Public Use
  Company Number: 2006GB00871

PATIENT
  Age: 80 Year
  Sex: Female

DRUGS (4)
  1. QUETIAPINE FUMARATE [Suspect]
     Indication: MANIA
     Route: 048
     Dates: start: 20060418, end: 20060424
  2. SOLIFENACIN [Concomitant]
     Indication: URINARY INCONTINENCE
     Route: 048
     Dates: start: 20040101, end: 20060424
  3. ESCITALOPRAM OXALATE [Concomitant]
     Indication: DEPRESSION
     Route: 048
     Dates: start: 20060201, end: 20060416
  4. MOVICOL [Concomitant]
     Indication: CONSTIPATION
     Route: 048
     Dates: start: 20060301

REACTIONS (3)
  - CATATONIA [None]
  - DISINHIBITION [None]
  - DISORIENTATION [None]
